FAERS Safety Report 8105741-0 (Version None)
Quarter: 2012Q1

REPORT INFORMATION
  Report Type: 
  Country: None (occurrence: None)
  Receive Date: 20120201
  Receipt Date: 20120127
  Transmission Date: 20120608
  Serious: Yes (Hospitalization)
  Sender: FDA-Public Use
  Company Number: US-AMGEN-USACT2011024505

PATIENT
  Age: 54 Year
  Sex: Female

DRUGS (3)
  1. OXALIPLATIN [Concomitant]
     Dosage: UNK
     Dates: start: 20110330
  2. CAPECITABINE [Concomitant]
     Dosage: UNK
     Dates: start: 20110330
  3. PANITUMUMAB [Suspect]
     Indication: OESOPHAGEAL CARCINOMA
     Dosage: 3.6 MG/KG, UNK
     Route: 042
     Dates: start: 20110330

REACTIONS (1)
  - FEBRILE NEUTROPENIA [None]
